FAERS Safety Report 6893442-6 (Version None)
Quarter: 2010Q3

REPORT INFORMATION
  Report Type: 
  Country: None (occurrence: None)
  Receive Date: 20100731
  Receipt Date: 20090911
  Transmission Date: 20110219
  Serious: No
  Sender: FDA-Public Use
  Company Number: US-PFIZER INC-2009245962

PATIENT
  Sex: Male
  Weight: 93 kg

DRUGS (7)
  1. LIPITOR [Suspect]
     Indication: MYOCARDIAL INFARCTION
     Dosage: 40 MG, 1X/DAY
     Route: 048
     Dates: start: 20040901, end: 20090101
  2. CRESTOR [Suspect]
     Dosage: 5 MG, UNK
  3. METOPROLOL [Concomitant]
     Dosage: UNK
  4. LISINOPRIL [Concomitant]
     Dosage: UNK
  5. ASPIRIN [Concomitant]
     Dosage: UNK
  6. ALPRAZOLAM [Concomitant]
     Dosage: UNK
  7. TAMSULOSIN HCL [Concomitant]
     Dosage: UNK

REACTIONS (6)
  - ARTHRALGIA [None]
  - DISCOMFORT [None]
  - EMOTIONAL DISORDER [None]
  - EPICONDYLITIS [None]
  - MUSCLE SPASMS [None]
  - STRESS [None]
